FAERS Safety Report 10868245 (Version 1)
Quarter: 2015Q1

REPORT INFORMATION
  Report Type: Spontaneous
  Country: US (occurrence: US)
  Receive Date: 20150225
  Receipt Date: 20150225
  Transmission Date: 20150721
  Serious: Yes (Other)
  Sender: FDA-Public Use
  Company Number: US-GLAXOSMITHKLINE-US2014GSK026642

PATIENT
  Age: 65 Year
  Sex: Female

DRUGS (13)
  1. SIMVASTATIN. [Concomitant]
     Active Substance: SIMVASTATIN
  2. BREO ELLIPTA [Suspect]
     Active Substance: FLUTICASONE FUROATE\VILANTEROL TRIFENATATE
     Indication: CHRONIC OBSTRUCTIVE PULMONARY DISEASE
     Dosage: 1 PUFF(S), QD
     Route: 055
     Dates: start: 201410
  3. OXYCODONE [Suspect]
     Active Substance: OXYCODONE
     Indication: ARTHRITIS
     Dosage: 30 MG, VA
     Route: 048
     Dates: start: 2008
  4. SOMA [Concomitant]
     Active Substance: CARISOPRODOL
  5. LEVAQUIN [Concomitant]
     Active Substance: LEVOFLOXACIN
  6. DILAUDID [Concomitant]
     Active Substance: HYDROMORPHONE HYDROCHLORIDE
  7. SYNTHROID [Concomitant]
     Active Substance: LEVOTHYROXINE SODIUM
  8. VITAMIN C [Concomitant]
     Active Substance: ASCORBIC ACID
  9. VITAMIN D3 [Concomitant]
     Active Substance: CHOLECALCIFEROL
  10. ALBUTEROL. [Suspect]
     Active Substance: ALBUTEROL
     Indication: PRODUCT USED FOR UNKNOWN INDICATION
  11. XANAX [Concomitant]
     Active Substance: ALPRAZOLAM
  12. VITAMIN B12 [Concomitant]
     Active Substance: CYANOCOBALAMIN
  13. CARISOPRODOL. [Concomitant]
     Active Substance: CARISOPRODOL

REACTIONS (6)
  - Blood pressure increased [Not Recovered/Not Resolved]
  - Pneumonia [Unknown]
  - Productive cough [Unknown]
  - Drug hypersensitivity [Unknown]
  - Bacterial infection [Unknown]
  - Ill-defined disorder [Unknown]

NARRATIVE: CASE EVENT DATE: 201412
